FAERS Safety Report 9523007 (Version 3)
Quarter: 2013Q4

REPORT INFORMATION
  Report Type: Spontaneous
  Country: JP (occurrence: JP)
  Receive Date: 20130913
  Receipt Date: 20131216
  Transmission Date: 20140711
  Serious: Yes (Hospitalization)
  Sender: FDA-Public Use
  Company Number: JP-BAYER-2013-104501

PATIENT
  Age: 79 Year
  Sex: Female
  Weight: 58 kg

DRUGS (15)
  1. NEXAVAR [Suspect]
     Indication: HEPATOCELLULAR CARCINOMA
     Dosage: 400 MG, BID
     Route: 048
     Dates: start: 20130820, end: 20130826
  2. NEXAVAR [Suspect]
     Indication: HEPATOCELLULAR CARCINOMA
     Dosage: 400 MG, QD
     Route: 048
     Dates: start: 20130904, end: 20130905
  3. BARACLUDE [Concomitant]
     Indication: HEPATIC CIRRHOSIS
     Dosage: DAILY DOSE .5 MG
     Route: 048
     Dates: start: 20130816
  4. LIVACT [Concomitant]
     Indication: HEPATIC CIRRHOSIS
     Dosage: 4.15 G, TID
     Route: 048
  5. GLACTIV [Concomitant]
     Indication: TYPE 2 DIABETES MELLITUS
     Dosage: DAILY DOSE 25 MG
     Route: 048
  6. PARIET [Concomitant]
     Indication: GASTRIC VARICES
     Dosage: DAILY DOSE 10 MG
     Route: 048
  7. RHUBARB DRY EXTRACT [Concomitant]
     Dosage: 0.5 MG, TID
     Route: 048
  8. SM-33 [Concomitant]
     Dosage: 0.5 MG, TID
     Route: 048
  9. RIZE [Concomitant]
     Dosage: DAILY DOSE 15 MG
     Route: 048
  10. AMLODIPINE [Concomitant]
     Dosage: DAILY DOSE 5 MG
     Route: 048
     Dates: end: 2013
  11. JANUVIA [Concomitant]
     Dosage: DAILY DOSE 25 MG
     Route: 048
  12. GRANDAXIN [Concomitant]
     Dosage: DAILY DOSE 150 MG
     Route: 048
  13. SOLANAX [Concomitant]
     Dosage: DAILY DOSE .6 MG
     Route: 048
  14. ALINAMIN F [Concomitant]
     Dosage: DAILY DOSE 75 MG
     Route: 048
  15. CRESTOR [Concomitant]
     Dosage: DAILY DOSE 2.5 MG
     Route: 048

REACTIONS (6)
  - Hyponatraemia [Recovered/Resolved]
  - Cerebral infarction [Unknown]
  - Blood pressure increased [None]
  - Liver disorder [Recovering/Resolving]
  - Hypophosphataemia [None]
  - Hypoalbuminaemia [None]
